FAERS Safety Report 9319243 (Version 1)
Quarter: 2013Q2

REPORT INFORMATION
  Report Type: Spontaneous
  Country: US (occurrence: US)
  Receive Date: 20130530
  Receipt Date: 20130530
  Transmission Date: 20140414
  Serious: No
  Sender: FDA-Public Use
  Company Number: US-NOVEN-13US006231

PATIENT
  Sex: Female

DRUGS (2)
  1. DAYTRANA [Suspect]
     Indication: ATTENTION DEFICIT/HYPERACTIVITY DISORDER
     Dosage: 1/2 20MG
     Route: 062
  2. DAYTRANA [Suspect]
     Dosage: 20 MG, UNK

REACTIONS (7)
  - Application site pain [Recovered/Resolved]
  - Application site pruritus [Recovered/Resolved]
  - Accidental exposure to product [Recovered/Resolved]
  - Drug prescribing error [Recovered/Resolved]
  - Drug administration error [Recovered/Resolved]
  - Wrong technique in drug usage process [None]
  - Product quality issue [Recovered/Resolved]
